FAERS Safety Report 7585710-X (Version None)
Quarter: 2011Q2

REPORT INFORMATION
  Report Type: 
  Country: None (occurrence: None)
  Receive Date: 20110629
  Receipt Date: 20110629
  Transmission Date: 20111010
  Serious: No
  Sender: FDA-Public Use
  Company Number: None

PATIENT
  Age: 52 Year
  Sex: Female
  Weight: 83.9154 kg

DRUGS (1)
  1. CIPROFLOXACIN [Suspect]
     Indication: CYSTITIS
     Dosage: 1 2 TIMES DAY 3 DAYS
     Dates: start: 20110412, end: 20110413

REACTIONS (2)
  - ABNORMAL DREAMS [None]
  - HALLUCINATION, AUDITORY [None]
